FAERS Safety Report 10090021 (Version 1)
Quarter: 2014Q2

REPORT INFORMATION
  Report Type: Report from Study
  Country: BR (occurrence: BR)
  Receive Date: 20140421
  Receipt Date: 20140421
  Transmission Date: 20141212
  Serious: Yes (Hospitalization, Other)
  Sender: FDA-Public Use
  Company Number: PHHY2014BR044980

PATIENT
  Age: 70 Year
  Sex: Female
  Weight: 60 kg

DRUGS (10)
  1. ONBREZ [Suspect]
     Dosage: 1 DF, QD (IN MORNING)
  2. FORASEQ [Suspect]
     Indication: BRONCHITIS
     Dosage: UNK UKN, UNK (USED ONLY EXPERIENCED OUTBREAK)
     Route: 055
     Dates: start: 2006
  3. FORASEQ [Suspect]
     Dosage: UNK UKN, UNK (AT A DOSE OF 12/200 UG USED ONLY EXPERIENCED OUTBREAK)
     Route: 055
     Dates: start: 201402, end: 201403
  4. FORASEQ [Suspect]
     Dosage: UNK UKN, UNK (USED ONLY EXPERIENCED OUTBREAK)
     Route: 055
     Dates: end: 20140408
  5. GLIFAGE [Concomitant]
     Indication: DIABETES MELLITUS
     Dosage: UNK UKN, UNK
  6. VITAMIN D [Concomitant]
     Dosage: UNK UKN, UNK
  7. CALCIUM [Concomitant]
     Dosage: UNK UKN, UNK
  8. CAPTOPRIL [Concomitant]
     Indication: HYPERTENSION
     Dosage: UNK UKN, UNK
  9. LOSARTAN [Concomitant]
     Indication: HYPERTENSION
     Dosage: UNK UKN, UNK
  10. SIMVASTATIN [Concomitant]
     Indication: HYPERTENSION
     Dosage: UNK UKN, UNK

REACTIONS (9)
  - Gastrointestinal carcinoma [Recovering/Resolving]
  - Haemorrhage [Recovering/Resolving]
  - Pain [Recovering/Resolving]
  - Weight decreased [Recovering/Resolving]
  - Neoplasm [Recovering/Resolving]
  - Gastrointestinal motility disorder [Recovering/Resolving]
  - Urinary tract infection [Recovering/Resolving]
  - Blood glucose increased [Recovering/Resolving]
  - Wrong technique in drug usage process [Unknown]
